FAERS Safety Report 7510276-X (Version None)
Quarter: 2011Q2

REPORT INFORMATION
  Report Type: 
  Country: None (occurrence: None)
  Receive Date: 20110527
  Receipt Date: 20100129
  Transmission Date: 20111010
  Serious: No
  Sender: FDA-Public Use
  Company Number: US-BAYER-201012794NA

PATIENT
  Age: 27 Year
  Sex: Female

DRUGS (1)
  1. AVELOX [Suspect]
     Indication: ACUTE SINUSITIS
     Dates: start: 20090201, end: 20090201

REACTIONS (2)
  - NAUSEA [None]
  - VOMITING [None]
